FAERS Safety Report 9946949 (Version 1)
Quarter: 2014Q1

REPORT INFORMATION
  Report Type: Report from Study
  Country: US (occurrence: US)
  Receive Date: 20140303
  Receipt Date: 20140303
  Transmission Date: 20141002
  Serious: No
  Sender: FDA-Public Use
  Company Number: US-ABBVIE-13P-163-1058513-00

PATIENT
  Age: 30 Year
  Sex: Male

DRUGS (4)
  1. HUMIRA [Suspect]
     Indication: CROHN^S DISEASE
     Dosage: LOADING DOSE
     Dates: start: 20130228
  2. OXYCODONE [Concomitant]
     Indication: URETERAL CATHETERISATION
  3. ALPRAZOLAM [Concomitant]
     Indication: BLADDER CATHETERISATION
  4. METOPROLOL [Concomitant]
     Indication: ATRIAL FIBRILLATION

REACTIONS (2)
  - Abdominal pain upper [Recovering/Resolving]
  - Abdominal pain [Recovering/Resolving]
